FAERS Safety Report 10054219 (Version 1)
Quarter: 2014Q2

REPORT INFORMATION
  Report Type: Spontaneous
  Country: DK (occurrence: IT)
  Receive Date: 20140402
  Receipt Date: 20140402
  Transmission Date: 20141212
  Serious: Yes (Hospitalization)
  Sender: FDA-Public Use
  Company Number: IT-FRI-1000066084

PATIENT
  Age: 61 Year
  Sex: Female

DRUGS (8)
  1. CITALOPRAM [Suspect]
     Dosage: 20 MG
     Route: 048
     Dates: start: 20130726, end: 20130806
  2. OLANZAPINE [Concomitant]
  3. SELEPARINA [Concomitant]
  4. OMEPRAZOLO [Concomitant]
  5. LYRICA [Concomitant]
  6. DELORAZEPAM [Concomitant]
     Route: 048
  7. MIRTAZAPINA [Concomitant]
     Route: 048
  8. CIPRALEX [Concomitant]
     Route: 048

REACTIONS (3)
  - Circulatory collapse [Not Recovered/Not Resolved]
  - Cyanosis [Not Recovered/Not Resolved]
  - Bradycardia [Not Recovered/Not Resolved]
